FAERS Safety Report 24129297 (Version 1)
Quarter: 2024Q3

REPORT INFORMATION
  Report Type: Spontaneous
  Country: US (occurrence: None)
  Receive Date: 20240723
  Receipt Date: 20240723
  Transmission Date: 20241017
  Serious: Yes (Disabling, Other)
  Sender: Public
  Company Number: None

PATIENT
  Age: 32 Year
  Sex: Female
  Weight: 71.21 kg

DRUGS (1)
  1. HERBALS\MITRAGYNINE [Suspect]
     Active Substance: HERBALS\MITRAGYNINE

REACTIONS (6)
  - Tremor [None]
  - Immobile [None]
  - Eye movement disorder [None]
  - Drug dependence [None]
  - Cluster headache [None]
  - Dysarthria [None]

NARRATIVE: CASE EVENT DATE: 20240721
